FAERS Safety Report 7152715-2 (Version None)
Quarter: 2010Q4

REPORT INFORMATION
  Report Type: 
  Country: None (occurrence: None)
  Receive Date: 20101208
  Receipt Date: 20101208
  Transmission Date: 20110411
  Serious: Yes (Hospitalization)
  Sender: FDA-Public Use
  Company Number: None

PATIENT
  Sex: Male
  Weight: 36 kg

DRUGS (8)
  1. PEG-L-ASPARAGINASE (PEGASPARGASE, ONCOSPAR) [Suspect]
     Dosage: 3225 MG
     Dates: end: 20090720
  2. CYTARABINE [Suspect]
     Dosage: 1191 MG
     Dates: end: 20090807
  3. MERCAPTOPURINE [Suspect]
     Dosage: 2100 MG
  4. METHOTREXATE [Suspect]
     Dosage: 60 MG
     Dates: end: 20090728
  5. CYCLOPHOSPHAMIDE [Suspect]
     Dosage: 2580 MG
     Dates: end: 20090804
  6. VINCRISTINE SULFATE [Suspect]
     Dosage: 3.8 MG
  7. ZOFRAN [Suspect]
  8. BACTRIM [Suspect]

REACTIONS (7)
  - ABDOMINAL PAIN [None]
  - DEHYDRATION [None]
  - HYPOPHAGIA [None]
  - HYPOTENSION [None]
  - PANCREATITIS [None]
  - SINUS TACHYCARDIA [None]
  - VOMITING [None]
